FAERS Safety Report 9485299 (Version 3)
Quarter: 2013Q3

REPORT INFORMATION
  Report Type: Spontaneous
  Country: JP (occurrence: JP)
  Receive Date: 20130828
  Receipt Date: 20130906
  Transmission Date: 20140515
  Serious: Yes (Hospitalization)
  Sender: FDA-Public Use
  Company Number: JP-B.I. PHARMACEUTICALS,INC./RIDGEFIELD-2013-BI-25818NB

PATIENT
  Age: 65 Year
  Sex: Female

DRUGS (10)
  1. MIRAPEX LA [Suspect]
     Dosage: 4.5 MG
     Route: 065
  2. RIVOTRIL / CLONAZEPAM [Concomitant]
     Route: 065
  3. TRERIEF / ZONISAMIDE [Concomitant]
     Route: 065
  4. MENESIT / LEVODOPA_CARBIDOPA HYDRATE [Concomitant]
     Route: 065
  5. COMTAN / ENTACAPONE [Concomitant]
     Route: 065
  6. LYRICA / PREGABALIN [Concomitant]
  7. SYMMETREL / AMANTADINE HYDROCHLORIDE [Concomitant]
     Route: 065
  8. METLIGINE / MIDODRINE HYDROCHLORIDE [Concomitant]
     Route: 065
  9. NEUPRO / ROTIGOTINE [Concomitant]
     Route: 065
  10. CALONAL / ACETAMINOPHEN [Concomitant]
     Route: 065

REACTIONS (1)
  - Femur fracture [Unknown]
